FAERS Safety Report 8221192 (Version 3)
Quarter: 2013Q1

REPORT INFORMATION
  Report Type: Spontaneous
  Country: US (occurrence: US)
  Receive Date: 20111102
  Receipt Date: 20130322
  Transmission Date: 20140127
  Serious: Yes (Hospitalization, Other)
  Sender: FDA-Public Use
  Company Number: US-ACTELION-A-US2011-56256

PATIENT
  Age: 82 Year
  Sex: Female

DRUGS (11)
  1. TRACLEER [Suspect]
     Indication: PULMONARY ARTERIAL HYPERTENSION
     Dosage: 62.5 MG, UNK
     Route: 048
     Dates: start: 201107
  2. TRACLEER [Suspect]
     Dosage: 125 MG, UNK
     Route: 048
  3. ASPIRIN [Concomitant]
     Dosage: 81 MG, UNK
     Route: 048
  4. LISINOPRIL [Concomitant]
     Dosage: 20 MG, BID
     Route: 048
  5. FUROSEMIDE [Concomitant]
     Dosage: 20 MG, QD
     Route: 048
  6. DOXAZOSIN [Concomitant]
     Dosage: 2 MG, BID
     Route: 048
  7. POTASSIUM CHLORIDE [Concomitant]
     Dosage: 10 MEQ, QD
     Route: 048
  8. LEVOTHYROXINE [Concomitant]
     Dosage: 15 MG, QD
     Route: 048
  9. LOVASTATIN [Concomitant]
     Dosage: 40 MG, UNK
     Route: 048
  10. AMIODARONE [Concomitant]
     Dosage: 200 MG, QD
     Route: 048
  11. XANAX [Concomitant]
     Dosage: 0.25 MG, PRN

REACTIONS (5)
  - Atrial fibrillation [Recovered/Resolved]
  - Palpitations [Recovered/Resolved]
  - Hypertension [Recovering/Resolving]
  - Condition aggravated [Recovering/Resolving]
  - Heart rate increased [Recovering/Resolving]
